FAERS Safety Report 7786341-9 (Version None)
Quarter: 2011Q3

REPORT INFORMATION
  Report Type: 
  Country: None (occurrence: None)
  Receive Date: 20110929
  Receipt Date: 20110926
  Transmission Date: 20111222
  Serious: Yes (Hospitalization)
  Sender: FDA-Public Use
  Company Number: PHHY2011MX85679

PATIENT
  Age: 79 Year
  Sex: Female

DRUGS (3)
  1. METFORMIN HCL [Concomitant]
     Dosage: 2 UKN (TABLETS), UNK (DAILY)
  2. ZOLEDRONOC ACID [Suspect]
     Indication: OSTEOPOROSIS
     Dosage: 5 MG, UNK (EACH YEAR)
     Route: 042
     Dates: start: 20110901
  3. INSULIN [Concomitant]
     Dosage: 2 UKN (INJECTIONS), UNK (DAILY)

REACTIONS (8)
  - DYSPEPSIA [None]
  - ORAL DISCOMFORT [None]
  - HALLUCINATION [None]
  - DROOLING [None]
  - DIZZINESS [None]
  - ABDOMINAL PAIN UPPER [None]
  - ABASIA [None]
  - CRYING [None]
